FAERS Safety Report 16784734 (Version 1)
Quarter: 2019Q3

REPORT INFORMATION
  Report Type: Spontaneous
  Country: DE (occurrence: DE)
  Receive Date: 20190909
  Receipt Date: 20190909
  Transmission Date: 20191005
  Serious: Yes (Other)
  Sender: FDA-Public Use
  Company Number: DE-SUN PHARMACEUTICAL INDUSTRIES LTD-2019RR-220164

PATIENT
  Sex: Male
  Weight: 67 kg

DRUGS (1)
  1. CIPRO BASICS 250MG FILMTABLETTEN [Suspect]
     Active Substance: CIPROFLOXACIN HYDROCHLORIDE
     Indication: PRODUCT USED FOR UNKNOWN INDICATION
     Dosage: 250 MILLIGRAM, DAILY, 1 TABLET
     Route: 065
     Dates: start: 20190325, end: 20190325

REACTIONS (19)
  - Nausea [Unknown]
  - Muscular weakness [Unknown]
  - Dyspepsia [Unknown]
  - Hormone level abnormal [Unknown]
  - Disturbance in attention [Unknown]
  - Restlessness [Unknown]
  - Limb discomfort [Unknown]
  - Myalgia [Unknown]
  - Atrophy [Unknown]
  - Photophobia [Unknown]
  - Muscular weakness [Unknown]
  - Sleep disorder [Unknown]
  - Mucosal dryness [Unknown]
  - Sleep disorder [Unknown]
  - Muscle spasms [Unknown]
  - Vitreous floaters [Unknown]
  - Dizziness [Unknown]
  - Capillary disorder [Unknown]
  - Arthropathy [Unknown]

NARRATIVE: CASE EVENT DATE: 20190325
